FAERS Safety Report 6065128-1 (Version None)
Quarter: 2009Q1

REPORT INFORMATION
  Report Type: 
  Country: None (occurrence: None)
  Receive Date: 20090130
  Receipt Date: 20090121
  Transmission Date: 20090719
  Serious: Yes (Other)
  Sender: FDA-Public Use
  Company Number: GXKR2009GB01018

PATIENT
  Sex: Female

DRUGS (2)
  1. ACETAMINOPHEN [Suspect]
     Indication: INCORRECT DOSE ADMINISTERED
     Dosage: 8 G, ONCE/SINGLE
  2. ACETYLCYSTEINE (NGX) (ACETYLCYSTEINE) UNKNOWN [Suspect]
     Indication: OVERDOSE
     Dosage: INTRAVENOUS
     Route: 042

REACTIONS (4)
  - DIARRHOEA [None]
  - FLUSHING [None]
  - OVERDOSE [None]
  - RENAL INFARCT [None]
